FAERS Safety Report 7643607-0 (Version None)
Quarter: 2011Q3

REPORT INFORMATION
  Report Type: 
  Country: None (occurrence: None)
  Receive Date: 20110729
  Receipt Date: 20110718
  Transmission Date: 20111222
  Serious: Yes (Other)
  Sender: FDA-Public Use
  Company Number: PHHY2011CA62913

PATIENT
  Sex: Female

DRUGS (6)
  1. ZOLEDRONOC ACID [Suspect]
     Indication: OSTEOPOROSIS
     Dosage: 5 MG ONCE IN A YEAR
     Route: 042
     Dates: start: 20100512
  2. FLUOXETINE [Concomitant]
  3. HYDROCHLOROTHIAZIDE [Concomitant]
  4. ALTACE [Concomitant]
  5. PRILOSEC [Concomitant]
  6. ZOLEDRONOC ACID [Suspect]
     Dosage: 5 MG ONCE A YEAR
     Route: 042
     Dates: start: 20110612

REACTIONS (3)
  - HAND FRACTURE [None]
  - WRIST FRACTURE [None]
  - FALL [None]
